FAERS Safety Report 16992456 (Version 1)
Quarter: 2019Q4

REPORT INFORMATION
  Report Type: Spontaneous
  Country: CN (occurrence: CN)
  Receive Date: 20191105
  Receipt Date: 20191105
  Transmission Date: 20200122
  Serious: Yes (Other)
  Sender: FDA-Public Use
  Company Number: CN-ASTELLAS-2019US043669

PATIENT
  Age: 1 Year
  Sex: Female

DRUGS (2)
  1. TACROLIMUS. [Suspect]
     Active Substance: TACROLIMUS
     Dosage: 0.25 MG, EVERY 12 HOURS
     Route: 048
     Dates: start: 2016
  2. TACROLIMUS. [Suspect]
     Active Substance: TACROLIMUS
     Indication: LIVER TRANSPLANT
     Route: 048
     Dates: start: 2016, end: 2016

REACTIONS (12)
  - Diffuse large B-cell lymphoma [Recovering/Resolving]
  - Cryptosporidiosis infection [Unknown]
  - Post transplant lymphoproliferative disorder [Recovering/Resolving]
  - Enterococcal infection [Unknown]
  - Epstein-Barr viraemia [Recovered/Resolved]
  - Jaundice [Unknown]
  - Pneumonia [Unknown]
  - Enteritis infectious [Unknown]
  - Toxicity to various agents [Unknown]
  - Klebsiella infection [Unknown]
  - Pseudomonas infection [Unknown]
  - Diarrhoea [Unknown]

NARRATIVE: CASE EVENT DATE: 2016
